FAERS Safety Report 24441833 (Version 2)
Quarter: 2024Q4

REPORT INFORMATION
  Report Type: Spontaneous
  Country: JP (occurrence: JP)
  Receive Date: 20241016
  Receipt Date: 20241017
  Transmission Date: 20250115
  Serious: No
  Sender: ROCHE
  Company Number: JP-CHUGAI-2024001837

PATIENT
  Age: 24 Year
  Sex: Male
  Weight: 69.5 kg

DRUGS (2)
  1. HEMLIBRA [Suspect]
     Active Substance: EMICIZUMAB-KXWH
     Indication: Haemophilia A without inhibitors
     Dosage: 210 MG, ONCE/2WEEKS
     Route: 058
     Dates: start: 20200411
  2. ADYNOVATE [Concomitant]
     Active Substance: ANTIHEMOPHILIC FACTOR, HUMAN RECOMBINANT
     Dosage: UNK, ADMINISTRATION AT THE TIME OF HAEMORRHAGE
     Dates: start: 20240123

REACTIONS (3)
  - Haemorrhagic diathesis [Recovered/Resolved]
  - Activated partial thromboplastin time prolonged [Unknown]
  - Haemophilic arthropathy [Not Recovered/Not Resolved]

NARRATIVE: CASE EVENT DATE: 20230101
